FAERS Safety Report 19718861 (Version 1)
Quarter: 2021Q3

REPORT INFORMATION
  Report Type: Spontaneous
  Country: US (occurrence: US)
  Receive Date: 20210819
  Receipt Date: 20210819
  Transmission Date: 20211014
  Serious: Yes (Other)
  Sender: FDA-Public Use
  Company Number: US-GLAXOSMITHKLINE-US2021GSK174425

PATIENT
  Sex: Male

DRUGS (4)
  1. RANITIDINE. [Suspect]
     Active Substance: RANITIDINE
     Indication: GASTRIC ULCER
     Dosage: UNK, THREE TIMES A WEEK ? 1 PILL
     Route: 065
     Dates: start: 199708, end: 201812
  2. ZANTAC [Suspect]
     Active Substance: RANITIDINE HYDROCHLORIDE
     Indication: GASTRIC ULCER
     Dosage: UNK, THREE TIMES A WEEK ? 1 PILL
     Route: 065
     Dates: start: 199708, end: 201812
  3. ZANTAC [Suspect]
     Active Substance: RANITIDINE HYDROCHLORIDE
     Indication: GASTRIC ULCER
     Dosage: UNK, THREE TIMES A WEEK ? 1 PILL
     Route: 065
     Dates: start: 199708, end: 201812
  4. RANITIDINE. [Suspect]
     Active Substance: RANITIDINE
     Indication: GASTRIC ULCER
     Dosage: UNK, THREE TIMES A WEEK ? 1 PILL
     Route: 065
     Dates: start: 199708, end: 201812

REACTIONS (1)
  - Prostate cancer [Unknown]
